FAERS Safety Report 4946936-4 (Version None)
Quarter: 2006Q1

REPORT INFORMATION
  Report Type: 
  Country: None (occurrence: None)
  Receive Date: 20060131
  Receipt Date: 20051103
  Transmission Date: 20060701
  Serious: No
  Sender: FDA-Public Use
  Company Number: 200519697US

PATIENT
  Age: 50 Year
  Sex: Female

DRUGS (1)
  1. KETEK [Suspect]
     Indication: UPPER RESPIRATORY TRACT INFECTION
     Dosage: PO
     Route: 048
     Dates: start: 20051101, end: 20051102

REACTIONS (4)
  - DIARRHOEA [None]
  - HEADACHE [None]
  - RASH PRURITIC [None]
  - VOMITING [None]
